FAERS Safety Report 16271078 (Version 2)
Quarter: 2019Q3

REPORT INFORMATION
  Report Type: Spontaneous
  Country: NL (occurrence: BE)
  Receive Date: 20190503
  Receipt Date: 20190705
  Transmission Date: 20191004
  Serious: Yes (Hospitalization)
  Sender: FDA-Public Use
  Company Number: BE-FRESENIUS KABI-FK201904936

PATIENT
  Age: 57 Year
  Sex: Male
  Weight: 70 kg

DRUGS (6)
  1. CETUXIMAB. [Suspect]
     Active Substance: CETUXIMAB
     Dosage: 970 MG (500MG/ SQUARE METER)
     Route: 042
     Dates: start: 20190313
  2. IRINOTECAN (MANUFACTURER UNKNOWN) [Suspect]
     Active Substance: IRINOTECAN
     Dosage: 350 MG (180 MG/ SQUARE METER)
     Route: 042
     Dates: start: 20190213
  3. CETUXIMAB. [Suspect]
     Active Substance: CETUXIMAB
     Indication: COLORECTAL CANCER METASTATIC
     Dosage: 780 MG (400 MG/ SQUARE METER)
     Route: 042
     Dates: start: 20190213
  4. AVELUMAB [Suspect]
     Active Substance: AVELUMAB
     Dosage: 710MG (10 MG/ SQUARE METER)
     Route: 042
     Dates: start: 20190313
  5. IRINOTECAN (MANUFACTURER UNKNOWN) [Suspect]
     Active Substance: IRINOTECAN
     Indication: COLORECTAL CANCER METASTATIC
     Dosage: 350 MG (180 MG/ SQUARE METER)
     Route: 042
     Dates: start: 20190313
  6. AVELUMAB [Suspect]
     Active Substance: AVELUMAB
     Indication: COLORECTAL CANCER METASTATIC
     Dosage: 700MG (10 MG/ SQUARE METER)
     Route: 042
     Dates: start: 20190227

REACTIONS (3)
  - Diarrhoea [Recovered/Resolved]
  - Acute kidney injury [Recovered/Resolved]
  - Dehydration [Recovered/Resolved]

NARRATIVE: CASE EVENT DATE: 20190325
